FAERS Safety Report 21689435 (Version 1)
Quarter: 2022Q4

REPORT INFORMATION
  Report Type: Report from Study
  Country: US (occurrence: None)
  Receive Date: 20221206
  Receipt Date: 20221206
  Transmission Date: 20230113
  Serious: Yes (Hospitalization)
  Sender: FDA-Public Use
  Company Number: US-Eisai Medical Research-EC-2022-127595

PATIENT
  Age: 61 Year
  Sex: Male
  Weight: 103 kg

DRUGS (8)
  1. LENVIMA [Suspect]
     Active Substance: LENVATINIB
     Indication: Renal cancer
     Route: 048
     Dates: start: 20221102, end: 202211
  2. KEYTRUDA [Suspect]
     Active Substance: PEMBROLIZUMAB
     Indication: Renal cancer
     Dosage: UNKNOWN DOSE AND FREQUENCY
     Route: 042
     Dates: end: 202211
  3. LEVOTHYROXINE [Concomitant]
     Active Substance: LEVOTHYROXINE
  4. ATORVASTATIN CALCIUM [Concomitant]
     Active Substance: ATORVASTATIN CALCIUM
  5. ASPIRIN [Concomitant]
     Active Substance: ASPIRIN
  6. HYDROCODONE BITARTRATE [Concomitant]
     Active Substance: HYDROCODONE BITARTRATE
  7. FISH OIL [Concomitant]
     Active Substance: FISH OIL
  8. TRAMADOL [Concomitant]
     Active Substance: TRAMADOL

REACTIONS (4)
  - Rhabdomyolysis [Unknown]
  - Blood pressure increased [Unknown]
  - Sneezing [Unknown]
  - Hypersensitivity [Unknown]

NARRATIVE: CASE EVENT DATE: 20221101
